FAERS Safety Report 7269333-8 (Version None)
Quarter: 2011Q1

REPORT INFORMATION
  Report Type: 
  Country: None (occurrence: None)
  Receive Date: 20110125
  Receipt Date: 20110120
  Transmission Date: 20110831
  Serious: Yes (Life-Threatening, Other)
  Sender: FDA-Public Use
  Company Number: 2010SP060201

PATIENT
  Age: 70 Year
  Sex: Male

DRUGS (1)
  1. AERIUS (DESLORATADINE /01398501/) [Suspect]
     Indication: PRODUCT USED FOR UNKNOWN INDICATION
     Dosage: 5 MG; QD
     Dates: start: 20101001

REACTIONS (3)
  - MEMORY IMPAIRMENT [None]
  - SOMNOLENCE [None]
  - BRAIN NEOPLASM [None]
